FAERS Safety Report 26060041 (Version 1)
Quarter: 2025Q4

REPORT INFORMATION
  Report Type: Spontaneous
  Country: CA (occurrence: CA)
  Receive Date: 20251118
  Receipt Date: 20251118
  Transmission Date: 20260118
  Serious: Yes (Other)
  Sender: NOVARTIS
  Company Number: CA-002147023-NVSC2025CA176985

PATIENT
  Age: 49 Year
  Sex: Female

DRUGS (2)
  1. MYFORTIC [Suspect]
     Active Substance: MYCOPHENOLATE SODIUM
     Indication: Product used for unknown indication
     Dosage: UNK
     Route: 065
  2. RITUXIMAB [Suspect]
     Active Substance: RITUXIMAB
     Indication: Connective tissue disease-associated interstitial lung disease
     Dosage: 1 DOSAGE FORM
     Route: 042
     Dates: start: 2025, end: 20250811

REACTIONS (8)
  - Pulmonary fibrosis [Unknown]
  - Dyspnoea [Unknown]
  - Fatigue [Unknown]
  - Back pain [Unknown]
  - Chest pain [Unknown]
  - Chest discomfort [Unknown]
  - Condition aggravated [Unknown]
  - Off label use [Unknown]
